FAERS Safety Report 11705114 (Version 3)
Quarter: 2016Q1

REPORT INFORMATION
  Report Type: Spontaneous
  Country: JP (occurrence: JP)
  Receive Date: 20151106
  Receipt Date: 20160311
  Transmission Date: 20160525
  Serious: Yes (Hospitalization, Other)
  Sender: FDA-Public Use
  Company Number: JP-PFIZER INC-2015377898

PATIENT
  Age: 83 Year
  Sex: Female

DRUGS (13)
  1. VOGLIBOSE [Suspect]
     Active Substance: VOGLIBOSE
     Dosage: UNK
     Route: 048
  2. ALLOPURINOL. [Suspect]
     Active Substance: ALLOPURINOL
     Dosage: UNK
     Route: 048
  3. MUCOSTA [Suspect]
     Active Substance: REBAMIPIDE
     Dosage: UNK
     Route: 048
  4. MAGNESIUM OXIDE. [Suspect]
     Active Substance: MAGNESIUM OXIDE
     Dosage: UNK
     Route: 048
  5. HERBAL NOS [Suspect]
     Active Substance: HERBALS
     Dosage: UNK
  6. SELBEX [Suspect]
     Active Substance: TEPRENONE
     Dosage: UNK
  7. PRIMPERAN [Suspect]
     Active Substance: METOCLOPRAMIDE HYDROCHLORIDE
     Dosage: UNK
  8. HALFDIGOXIN [Suspect]
     Active Substance: DIGOXIN
     Dosage: UNK
     Route: 048
  9. LOXONIN [Suspect]
     Active Substance: LOXOPROFEN SODIUM
     Dosage: UNK
     Route: 048
  10. OPALMON [Suspect]
     Active Substance: LIMAPROST
     Dosage: UNK
     Route: 048
  11. SHAKUYAKUKANZOTO [Suspect]
     Active Substance: HERBALS
     Dosage: UNK
     Route: 048
  12. AMLODIN [Suspect]
     Active Substance: AMLODIPINE BESYLATE
     Dosage: UNK
     Route: 048
  13. FUROSEMIDE. [Suspect]
     Active Substance: FUROSEMIDE
     Dosage: UNK
     Route: 048

REACTIONS (13)
  - Decreased appetite [Recovering/Resolving]
  - Nausea [Unknown]
  - Pseudoaldosteronism [Unknown]
  - Blood creatinine increased [Recovered/Resolved]
  - Dehydration [Unknown]
  - Parkinsonism [Unknown]
  - Oedema [Recovered/Resolved]
  - Movement disorder [Unknown]
  - Renal disorder [Unknown]
  - Constipation [Unknown]
  - Muscle rigidity [Unknown]
  - Hypokalaemia [Unknown]
  - Hypermagnesaemia [Unknown]
